FAERS Safety Report 17110735 (Version 1)
Quarter: 2019Q4

REPORT INFORMATION
  Report Type: Spontaneous
  Country: US (occurrence: US)
  Receive Date: 20191204
  Receipt Date: 20191204
  Transmission Date: 20200122
  Serious: Yes (Hospitalization)
  Sender: FDA-Public Use
  Company Number: US-GW PHARMA-201909USGW3516

PATIENT

DRUGS (1)
  1. EPIDIOLEX [Suspect]
     Active Substance: CANNABIDIOL
     Indication: PRODUCT USED FOR UNKNOWN INDICATION
     Dosage: 8.69 MG/KG, 100 MILLIGRAM, BID
     Dates: start: 20181226, end: 20190927

REACTIONS (1)
  - Herpangina [Unknown]

NARRATIVE: CASE EVENT DATE: 2019
